FAERS Safety Report 7382673-7 (Version None)
Quarter: 2011Q1

REPORT INFORMATION
  Report Type: 
  Country: None (occurrence: None)
  Receive Date: 20110329
  Receipt Date: 20110315
  Transmission Date: 20110831
  Serious: Yes (Other)
  Sender: FDA-Public Use
  Company Number: US-MYLANLABS-2011S1005768

PATIENT
  Age: 59 Year
  Sex: Male

DRUGS (3)
  1. TIZANIDINE [Suspect]
     Dosage: 6MG AT BEDTIME
     Route: 065
  2. BACLOFEN [Suspect]
     Dosage: PRESCRIBED DOSAGE 40MG EVERY 6 HOURS
     Route: 065
  3. BACLOFEN [Suspect]
     Dosage: BEFORE ADMISSION HE WOULD REGULARLY TAKE AN EXTRA 1-2 DOSES DAILY (TOTAL UP TO 240 MG/DAY)
     Route: 065

REACTIONS (8)
  - AUTONOMIC NERVOUS SYSTEM IMBALANCE [None]
  - DRUG INTERACTION [None]
  - RENAL TUBULAR NECROSIS [None]
  - MOTOR DYSFUNCTION [None]
  - HYPERTENSION [None]
  - TACHYCARDIA [None]
  - DELIRIUM [None]
  - WITHDRAWAL SYNDROME [None]
